FAERS Safety Report 20467400 (Version 1)
Quarter: 2022Q1

REPORT INFORMATION
  Report Type: Spontaneous
  Country: US (occurrence: US)
  Receive Date: 20220214
  Receipt Date: 20220214
  Transmission Date: 20220423
  Serious: No
  Sender: FDA-Public Use
  Company Number: US-JNJFOC-20220204927

PATIENT
  Age: 40 Year
  Sex: Female

DRUGS (4)
  1. ZYRTEC [Suspect]
     Active Substance: CETIRIZINE HYDROCHLORIDE
     Indication: Hypersensitivity
     Route: 065
     Dates: start: 2022
  2. BENADRYL [Concomitant]
     Active Substance: DIPHENHYDRAMINE HYDROCHLORIDE
     Indication: Hypersensitivity
     Route: 065
     Dates: start: 2022
  3. DERMATOLOGICALS [Concomitant]
     Indication: Dry skin
     Dosage: 2 PEA SIZE AMOUNT
     Route: 061
     Dates: start: 20220130
  4. DERMATOLOGICALS [Concomitant]
     Indication: Skin disorder
     Dosage: 1 PUMP
     Route: 061
     Dates: start: 20220130, end: 20220130

REACTIONS (1)
  - Product use in unapproved indication [Unknown]

NARRATIVE: CASE EVENT DATE: 20220101
